FAERS Safety Report 21397280 (Version 2)
Quarter: 2022Q4

REPORT INFORMATION
  Report Type: Report from Study
  Country: IT (occurrence: IT)
  Receive Date: 20220930
  Receipt Date: 20221014
  Transmission Date: 20230112
  Serious: Yes (Death)
  Sender: FDA-Public Use
  Company Number: IT-DSJP-DSU-2022-135363

PATIENT
  Age: 51 Year
  Sex: Female
  Weight: 63 kg

DRUGS (8)
  1. ENHERTU [Suspect]
     Active Substance: FAM-TRASTUZUMAB DERUXTECAN-NXKI
     Indication: HER2 positive breast cancer
     Dosage: 300 MG, ONCE EVERY 3 WK
     Route: 042
     Dates: start: 20211230, end: 20220810
  2. ENHERTU [Suspect]
     Active Substance: FAM-TRASTUZUMAB DERUXTECAN-NXKI
     Dosage: 340 MG, ONCE EVERY 3 WK
     Route: 042
     Dates: start: 20211230, end: 20220810
  3. IBUPROFEN SODIUM [Concomitant]
     Active Substance: IBUPROFEN SODIUM
     Indication: Pain
     Dosage: 600 MG, AS NEEDED
     Route: 065
     Dates: start: 20220501, end: 20220910
  4. ORAMORPH SR SUSTAINED RELEASE [Concomitant]
     Active Substance: MORPHINE SULFATE
     Indication: Pain
     Dosage: 10 MG, AS NEEDED
     Route: 065
     Dates: start: 20220501, end: 20220910
  5. OMEPRAZOLE [Concomitant]
     Active Substance: OMEPRAZOLE
     Indication: Gastric disorder
     Dosage: 20 MG, QD
     Route: 065
     Dates: start: 2015, end: 20220910
  6. VARCODES [Concomitant]
     Indication: Pain
     Dosage: 4 MG, QD
     Route: 065
     Dates: start: 20220501, end: 20220910
  7. TRAMADOL HYDROCHLORIDE [Concomitant]
     Active Substance: TRAMADOL HYDROCHLORIDE
     Indication: Pain
     Dosage: 100 MG, QD
     Route: 065
     Dates: start: 20220501, end: 20220910
  8. BUPRENORPHINE [Concomitant]
     Active Substance: BUPRENORPHINE
     Indication: Pain
     Dosage: 52.5 UG (EVERY 72 HRS)
     Route: 065

REACTIONS (1)
  - Pneumonia [Fatal]

NARRATIVE: CASE EVENT DATE: 20220828
